FAERS Safety Report 23152782 (Version 1)
Quarter: 2023Q4

REPORT INFORMATION
  Report Type: Spontaneous
  Country: US (occurrence: US)
  Receive Date: 20231107
  Receipt Date: 20231107
  Transmission Date: 20240110
  Serious: No
  Sender: FDA-Public Use
  Company Number: US-PADAGIS-2023PAD01557

PATIENT

DRUGS (2)
  1. TESTOSTERONE [Suspect]
     Active Substance: TESTOSTERONE
     Indication: Blood testosterone decreased
     Dosage: TWO PUMPS DAILY
     Route: 065
     Dates: start: 20231013
  2. TESTOSTERONE [Suspect]
     Active Substance: TESTOSTERONE
     Dosage: ONE PUMP DAILY
     Route: 065

REACTIONS (3)
  - Nasal dryness [Unknown]
  - Condition aggravated [Unknown]
  - Drug hypersensitivity [Unknown]
